FAERS Safety Report 17890523 (Version 1)
Quarter: 2020Q2

REPORT INFORMATION
  Report Type: Spontaneous
  Country: RU (occurrence: RU)
  Receive Date: 20200612
  Receipt Date: 20200612
  Transmission Date: 20200714
  Serious: Yes (Other)
  Sender: FDA-Public Use
  Company Number: RU-GILEAD-2020-0472066

PATIENT
  Age: 81 Year
  Sex: Female
  Weight: 71 kg

DRUGS (8)
  1. ATORVASTATIN [Concomitant]
     Active Substance: ATORVASTATIN
     Indication: ANGINA PECTORIS
     Dosage: 20 MG, QD
     Route: 048
  2. RANEXA [Suspect]
     Active Substance: RANOLAZINE
     Indication: ANGINA PECTORIS
     Dosage: 1000 MG, ONCE
     Route: 048
     Dates: start: 2020, end: 2020
  3. TORASEMIDE [Concomitant]
     Active Substance: TORSEMIDE
     Indication: ANGINA PECTORIS
     Dosage: 5 MG, QD
     Route: 048
  4. BISOPROLOL [Concomitant]
     Active Substance: BISOPROLOL
     Indication: ANGINA PECTORIS
     Route: 048
  5. ENALAPRIL [Concomitant]
     Active Substance: ENALAPRIL
     Indication: ANGINA PECTORIS
     Dosage: 2.5 MG, BID
     Route: 048
  6. AMLODIPINE [Concomitant]
     Active Substance: AMLODIPINE BESYLATE
     Indication: ANGINA PECTORIS
     Dosage: 2.5 MG, QD
     Route: 048
     Dates: start: 2020
  7. VEROSPIRON [Concomitant]
     Active Substance: SPIRONOLACTONE
     Indication: ANGINA PECTORIS
     Dosage: 25 MG, QD
     Route: 048
  8. CARDIOMAGNYL [Concomitant]
     Active Substance: ASPIRIN\MAGNESIUM HYDROXIDE
     Indication: ANGINA PECTORIS
     Dosage: 75/15,2 MG (75/15,2 MG  1 IN 1 D)
     Route: 048

REACTIONS (1)
  - Uterine haemorrhage [Unknown]

NARRATIVE: CASE EVENT DATE: 2020
